FAERS Safety Report 6743977 (Version 4)
Quarter: 2019Q1

REPORT INFORMATION
  Report Type: Spontaneous
  Country: GB (occurrence: GB)
  Receive Date: 20080829
  Receipt Date: 20190311
  Transmission Date: 20190418
  Serious: Yes (Other)
  Sender: FDA-Public Use
  Company Number: GB-PFIZER INC-2008069844

PATIENT
  Age: 24 Year
  Sex: Female

DRUGS (1)
  1. CHAMPIX [Suspect]
     Active Substance: VARENICLINE TARTRATE
     Indication: SMOKING CESSATION THERAPY
     Dosage: 1 MG, 2X/DAY
     Route: 048
     Dates: start: 20080707, end: 20080721

REACTIONS (3)
  - Depression [Recovering/Resolving]
  - Depressed mood [Recovering/Resolving]
  - Tearfulness [Recovering/Resolving]

NARRATIVE: CASE EVENT DATE: 20080716
